FAERS Safety Report 18927040 (Version 1)
Quarter: 2021Q1

REPORT INFORMATION
  Report Type: Spontaneous
  Country: US (occurrence: US)
  Receive Date: 20210222
  Receipt Date: 20210222
  Transmission Date: 20210420
  Serious: Yes (Other)
  Sender: FDA-Public Use
  Company Number: None

PATIENT
  Age: 46 Year
  Sex: Female
  Weight: 90 kg

DRUGS (12)
  1. FLONASE [Concomitant]
     Active Substance: FLUTICASONE PROPIONATE
  2. HYDROCODONE [Concomitant]
     Active Substance: HYDROCODONE
  3. VOLTATEN GEL [Concomitant]
  4. LIDOCAINE GEL [Concomitant]
     Active Substance: LIDOCAINE HYDROCHLORIDE
  5. SPRIX [Suspect]
     Active Substance: KETOROLAC TROMETHAMINE
     Dates: start: 20210202, end: 20210205
  6. NAPRELAN 1000MG [Concomitant]
  7. AMBIEN [Concomitant]
     Active Substance: ZOLPIDEM TARTRATE
  8. WELLBUTRIN XL 450MG [Concomitant]
  9. CLARITIN 20MG [Concomitant]
  10. ZIPSOR 25MG [Concomitant]
  11. BENADRY 25?50MG [Concomitant]
  12. MULTIVITAMIN [Concomitant]
     Active Substance: VITAMINS

REACTIONS (1)
  - Colitis [None]

NARRATIVE: CASE EVENT DATE: 20210205
